FAERS Safety Report 18146467 (Version 1)
Quarter: 2020Q3

REPORT INFORMATION
  Report Type: Spontaneous
  Country: US (occurrence: US)
  Receive Date: 20200813
  Receipt Date: 20200813
  Transmission Date: 20201103
  Serious: Yes (Other)
  Sender: FDA-Public Use
  Company Number: US-GW PHARMA-202008USGW02744

PATIENT

DRUGS (1)
  1. EPIDIOLEX [Suspect]
     Active Substance: CANNABIDIOL
     Indication: EPILEPSY
     Dosage: 100 MILLIGRAM, BID
     Route: 048
     Dates: start: 20181231

REACTIONS (4)
  - Balance disorder [Unknown]
  - Fall [Recovered/Resolved]
  - Product use in unapproved indication [Not Recovered/Not Resolved]
  - Upper limb fracture [Not Recovered/Not Resolved]

NARRATIVE: CASE EVENT DATE: 20181231
